FAERS Safety Report 21117696 (Version 2)
Quarter: 2022Q3

REPORT INFORMATION
  Report Type: Report from Study
  Country: US (occurrence: US)
  Receive Date: 20220722
  Receipt Date: 20220805
  Transmission Date: 20221026
  Serious: No
  Sender: FDA-Public Use
  Company Number: US-BIOVITRUM-2022US08730

PATIENT
  Sex: Male

DRUGS (2)
  1. DOPTELET [Suspect]
     Active Substance: AVATROMBOPAG MALEATE
     Indication: Immune thrombocytopenia
     Dosage: 40MG ON MON, WED, FRI
     Dates: start: 20220614
  2. DOPTELET [Suspect]
     Active Substance: AVATROMBOPAG MALEATE
     Dosage: TWO TABLETS (40 MILLIGRAMS) BY MOUTH ON MONDAY, WEDNESDAY AND FRIDAY, TAKE ONE TABLET DAILY ALL OTHE
     Dates: start: 20220610

REACTIONS (2)
  - Platelet count decreased [Unknown]
  - Drug ineffective [Unknown]
